FAERS Safety Report 20790807 (Version 1)
Quarter: 2022Q2

REPORT INFORMATION
  Report Type: Spontaneous
  Country: HR (occurrence: None)
  Receive Date: 20220505
  Receipt Date: 20220505
  Transmission Date: 20220721
  Serious: Yes (Death)
  Sender: FDA-Public Use
  Company Number: HR-ROCHE-3086338

PATIENT
  Sex: Male

DRUGS (4)
  1. OCRELIZUMAB [Suspect]
     Active Substance: OCRELIZUMAB
     Indication: Product used for unknown indication
     Dosage: SECOND CYCLE OF OCRELIZUMAB - 10/2019?THIRD CYCLE OF OCRELIZUMAB - 06/2020?FOURTH CYCLE OF OCRELIZUM
     Route: 065
  2. COVID-19 VACCINE [Concomitant]
     Dates: start: 20210623
  3. ACETAMINOPHEN [Concomitant]
     Active Substance: ACETAMINOPHEN
  4. ASPIRIN [Concomitant]
     Active Substance: ASPIRIN

REACTIONS (1)
  - COVID-19 [Fatal]

NARRATIVE: CASE EVENT DATE: 20211213
